FAERS Safety Report 20040495 (Version 1)
Quarter: 2021Q4

REPORT INFORMATION
  Report Type: Spontaneous
  Country: US (occurrence: None)
  Receive Date: 20211106
  Receipt Date: 20211106
  Transmission Date: 20220303
  Serious: Yes (Other)
  Sender: FDA-Public Use
  Company Number: None

PATIENT
  Age: 72 Year
  Sex: Female
  Weight: 76.5 kg

DRUGS (1)
  1. MONTELUKAST SODIUM [Suspect]
     Active Substance: MONTELUKAST SODIUM
     Indication: Multiple allergies
     Dosage: FREQUENCY : DAILY;?
     Route: 048
     Dates: start: 20210422, end: 20211103

REACTIONS (11)
  - Depression [None]
  - Anxiety [None]
  - Panic attack [None]
  - Agitation [None]
  - Dyspnoea [None]
  - Depressed mood [None]
  - Tremor [None]
  - Emotional disorder [None]
  - Hypersomnia [None]
  - Electric shock sensation [None]
  - Therapy cessation [None]

NARRATIVE: CASE EVENT DATE: 20211103
